FAERS Safety Report 14778628 (Version 1)
Quarter: 2018Q2

REPORT INFORMATION
  Report Type: Report from Study
  Country: ES (occurrence: ES)
  Receive Date: 20180419
  Receipt Date: 20180419
  Transmission Date: 20180711
  Serious: Yes (Life-Threatening, Hospitalization)
  Sender: FDA-Public Use
  Company Number: ES-ASTELLAS-2018US018738

PATIENT
  Age: 72 Year
  Sex: Male

DRUGS (3)
  1. TACROLIMUS. [Suspect]
     Active Substance: TACROLIMUS
     Indication: HEART TRANSPLANT
     Route: 048
     Dates: start: 201703, end: 20170420
  2. IMUREL                             /00001501/ [Suspect]
     Active Substance: AZATHIOPRINE SODIUM
     Indication: HEART TRANSPLANT
     Route: 048
     Dates: start: 201609, end: 20170420
  3. TOLRESTAT [Suspect]
     Active Substance: TOLRESTAT
     Indication: HEART TRANSPLANT
     Route: 048
     Dates: start: 201703, end: 201704

REACTIONS (1)
  - Encephalopathy [Recovering/Resolving]

NARRATIVE: CASE EVENT DATE: 20170403
